FAERS Safety Report 7591584-3 (Version None)
Quarter: 2011Q3

REPORT INFORMATION
  Report Type: 
  Country: None (occurrence: None)
  Receive Date: 20110706
  Receipt Date: 20091122
  Transmission Date: 20111222
  Serious: Yes (Death, Other)
  Sender: FDA-Public Use
  Company Number: US-BAYER-200940565NA

PATIENT
  Age: 76 Year
  Sex: Male
  Weight: 84 kg

DRUGS (7)
  1. FUROSEMIDE [Concomitant]
     Dosage: UNK
     Route: 042
     Dates: start: 20010908
  2. ACETYLSALICYLIC ACID SRT [Concomitant]
     Dosage: 325 MG, UNK
     Route: 048
     Dates: start: 20010905
  3. FUROSEMIDE [Concomitant]
     Dosage: 40 MG, UNK
     Route: 042
     Dates: start: 20010908
  4. PRIMAXIN [Concomitant]
     Dosage: 500 MG, UNK
     Route: 042
     Dates: start: 20010910
  5. CEFAZOLIN [Concomitant]
     Dosage: 1000 MG, UNK
     Route: 042
     Dates: start: 20010907
  6. TRASYLOL [Suspect]
     Indication: PRODUCT USED FOR UNKNOWN INDICATION
     Dosage: UNK
     Route: 042
     Dates: start: 20010916
  7. HEPARIN [Concomitant]
     Dosage: UNK
     Dates: start: 20010905

REACTIONS (13)
  - RENAL FAILURE [None]
  - RENAL INJURY [None]
  - MULTI-ORGAN FAILURE [None]
  - UNEVALUABLE EVENT [None]
  - PAIN [None]
  - FEAR [None]
  - EMOTIONAL DISTRESS [None]
  - STRESS [None]
  - INJURY [None]
  - ANHEDONIA [None]
  - ANXIETY [None]
  - DEATH [None]
  - RENAL IMPAIRMENT [None]
